FAERS Safety Report 22591861 (Version 1)
Quarter: 2023Q2

REPORT INFORMATION
  Report Type: Report from Study
  Country: US (occurrence: US)
  Receive Date: 20230612
  Receipt Date: 20230612
  Transmission Date: 20230721
  Serious: Yes (Hospitalization, Other)
  Sender: FDA-Public Use
  Company Number: US-ABBVIE-5284856

PATIENT
  Age: 38 Year
  Sex: Male

DRUGS (1)
  1. SKYRIZI [Suspect]
     Active Substance: RISANKIZUMAB-RZAA
     Indication: Crohn^s disease
     Dosage: DOSE:360 DOSAGE FORM
     Route: 058
     Dates: start: 20221208

REACTIONS (2)
  - Abdominal abscess [Recovering/Resolving]
  - Scar [Unknown]

NARRATIVE: CASE EVENT DATE: 20230601
